FAERS Safety Report 5467753-5 (Version None)
Quarter: 2007Q3

REPORT INFORMATION
  Report Type: 
  Country: None (occurrence: None)
  Receive Date: 20070926
  Receipt Date: 20070919
  Transmission Date: 20080115
  Serious: Yes (Disabling)
  Sender: FDA-Public Use
  Company Number: PHFR2007GB02781

PATIENT
  Age: 75 Year
  Sex: Female
  Weight: 76.3 kg

DRUGS (14)
  1. PAMIDRONATE DISODIUM [Suspect]
     Indication: OSTEOPOROSIS
     Dosage: 30 MG, Q3MO
     Route: 042
     Dates: start: 20020902, end: 20060307
  2. IMDUR [Concomitant]
     Route: 065
  3. NICORANDIL [Concomitant]
     Route: 065
  4. RAMIPRIL [Concomitant]
     Route: 065
  5. SPIRONOLACTONE [Concomitant]
     Route: 065
  6. TEMAZEPAM [Concomitant]
     Route: 065
  7. VITAMIN D [Concomitant]
     Route: 065
  8. WARFARIN SODIUM [Concomitant]
     Route: 065
  9. GABAPENTIN [Concomitant]
     Dosage: 300 MG, TID
     Route: 048
  10. IBANDRONATE SODIUM [Suspect]
     Indication: OSTEOPOROSIS
     Dosage: 3 MG, Q3MO
     Route: 042
     Dates: start: 20060817, end: 20070616
  11. BUMETANIDE [Concomitant]
     Route: 065
  12. CALCIUM [Concomitant]
     Route: 065
  13. CODEINE PHOSPHATE [Concomitant]
     Route: 065
  14. FLUOXETINE [Concomitant]
     Route: 065

REACTIONS (1)
  - OSTEONECROSIS [None]
